FAERS Safety Report 4780769-7 (Version None)
Quarter: 2005Q3

REPORT INFORMATION
  Report Type: 
  Country: None (occurrence: None)
  Receive Date: 20050921
  Receipt Date: 20050823
  Transmission Date: 20060218
  Serious: Yes (Death)
  Sender: FDA-Public Use
  Company Number: 2005BH001217

PATIENT
  Sex: 0

DRUGS (5)
  1. DOXORUBICIN HCL [Suspect]
     Dosage: TRPL
     Route: 064
  2. FLUOROURACIL [Suspect]
  3. VINCRISTINE SULFATE [Suspect]
     Dosage: TRPL
     Route: 064
  4. ENDOXAN BAXTER (CYCLOPHOSPHAMIDE) [Suspect]
     Dosage: TRPL
     Route: 064
  5. METHOTREXATE [Suspect]
     Dosage: TRPL
     Route: 064

REACTIONS (2)
  - INTRA-UTERINE DEATH [None]
  - MATERNAL DRUGS AFFECTING FOETUS [None]
